FAERS Safety Report 12175159 (Version 1)
Quarter: 2016Q1

REPORT INFORMATION
  Report Type: Report from Study
  Country: US (occurrence: US)
  Receive Date: 20160314
  Receipt Date: 20160314
  Transmission Date: 20160526
  Serious: Yes (Other)
  Sender: FDA-Public Use
  Company Number: US-SUN PHARMACEUTICAL INDUSTRIES LTD-2016US-112485

PATIENT
  Age: 13 Year
  Sex: Female

DRUGS (1)
  1. TOPIRAMATE. [Suspect]
     Active Substance: TOPIRAMATE
     Indication: MIGRAINE
     Dosage: 25 MG, BID
     Route: 065

REACTIONS (7)
  - Sinus bradycardia [Unknown]
  - Amenorrhoea [Unknown]
  - Hypophagia [Unknown]
  - Electrocardiogram ST-T change [Unknown]
  - Anorexia nervosa [Unknown]
  - Binge eating [Unknown]
  - Asthenia [Unknown]
